FAERS Safety Report 7394519-1 (Version None)
Quarter: 2011Q2

REPORT INFORMATION
  Report Type: 
  Country: None (occurrence: None)
  Receive Date: 20110405
  Receipt Date: 20110329
  Transmission Date: 20111010
  Serious: Yes (Hospitalization)
  Sender: FDA-Public Use
  Company Number: PHHY2011GR26269

PATIENT
  Age: 85 Year
  Sex: Male

DRUGS (2)
  1. STALEVO 100 [Suspect]
     Indication: PARKINSON'S DISEASE
     Dosage: 4 DF, DAILY
  2. EXELON [Suspect]
     Dosage: 2 DF, DAILY

REACTIONS (2)
  - EMBOLISM ARTERIAL [None]
  - MYOCARDIAL INFARCTION [None]
